FAERS Safety Report 25185224 (Version 3)
Quarter: 2025Q2

REPORT INFORMATION
  Report Type: Spontaneous
  Country: US (occurrence: US)
  Receive Date: 20250410
  Receipt Date: 20250527
  Transmission Date: 20250717
  Serious: No
  Sender: NOVARTIS
  Company Number: US-002147023-NVSC2025US059819

PATIENT
  Sex: Male

DRUGS (2)
  1. COSENTYX [Suspect]
     Active Substance: SECUKINUMAB
     Indication: Pain
     Dosage: UNK, (1X300MG/2ML) QW
     Route: 058
     Dates: start: 20250404, end: 20250404
  2. COSENTYX [Suspect]
     Active Substance: SECUKINUMAB
     Indication: Gait inability

REACTIONS (2)
  - Pain [Unknown]
  - Product use in unapproved indication [Unknown]
